FAERS Safety Report 7032353-2 (Version None)
Quarter: 2010Q4

REPORT INFORMATION
  Report Type: 
  Country: None (occurrence: None)
  Receive Date: 20101007
  Receipt Date: 20100929
  Transmission Date: 20110411
  Serious: Yes (Disabling, Other)
  Sender: FDA-Public Use
  Company Number: US-BAXTER-2009BH019723

PATIENT
  Age: 48 Year
  Sex: Female

DRUGS (10)
  1. PHENERGAN [Suspect]
     Indication: NAUSEA
     Route: 013
     Dates: start: 20071228, end: 20071228
  2. PHENERGAN [Suspect]
     Indication: VOMITING
     Route: 013
     Dates: start: 20071228, end: 20071228
  3. MORPHINE SULFATE [Suspect]
     Indication: ABDOMINAL PAIN
     Route: 042
     Dates: start: 20071228, end: 20071228
  4. SOLU-MEDROL [Suspect]
     Indication: PRODUCT USED FOR UNKNOWN INDICATION
     Route: 042
     Dates: start: 20071228, end: 20071228
  5. ACIPHEX [Concomitant]
     Indication: PRODUCT USED FOR UNKNOWN INDICATION
     Route: 048
  6. ASACOL [Concomitant]
     Indication: CROHN'S DISEASE
     Route: 048
  7. ENTOCORT EC [Concomitant]
     Indication: CROHN'S DISEASE
     Route: 048
  8. LOPRESSOR [Concomitant]
     Indication: HYPERTENSION
     Route: 048
  9. WELCHOL [Concomitant]
     Indication: PRODUCT USED FOR UNKNOWN INDICATION
     Route: 048
  10. NORMAL SALINE [Concomitant]
     Indication: PRODUCT USED FOR UNKNOWN INDICATION
     Route: 042
     Dates: start: 20071228, end: 20071228

REACTIONS (8)
  - ARTERIAL INSUFFICIENCY [None]
  - ARTERIOSCLEROSIS [None]
  - INCISION SITE CELLULITIS [None]
  - INCORRECT ROUTE OF DRUG ADMINISTRATION [None]
  - NECROSIS [None]
  - PERIPHERAL ISCHAEMIA [None]
  - PHANTOM PAIN [None]
  - WOUND INFECTION STAPHYLOCOCCAL [None]
